FAERS Safety Report 6313746-5 (Version None)
Quarter: 2009Q3

REPORT INFORMATION
  Report Type: 
  Country: None (occurrence: None)
  Receive Date: 20090818
  Receipt Date: 20090812
  Transmission Date: 20100115
  Serious: Yes (Hospitalization)
  Sender: FDA-Public Use
  Company Number: US-ROXANE LABORATORIES, INC.-2009-RO-00815RO

PATIENT
  Age: 54 Year
  Sex: Male

DRUGS (8)
  1. PREDNISONE [Suspect]
     Indication: CHRONIC INFLAMMATORY DEMYELINATING POLYRADICULONEUROPATHY
  2. MYCOPHENOLATE MOFETIL [Suspect]
     Indication: CHRONIC INFLAMMATORY DEMYELINATING POLYRADICULONEUROPATHY
  3. IMMUNE GLOBULIN INTRAVENOUS (HUMAN) [Suspect]
     Indication: CHRONIC INFLAMMATORY DEMYELINATING POLYRADICULONEUROPATHY
     Route: 042
  4. WARFARIN SODIUM [Suspect]
     Indication: PROTEIN S DEFICIENCY
  5. ANTIBIOTIC [Concomitant]
     Indication: ASPERGILLOSIS
  6. ANTIBIOTIC [Concomitant]
     Indication: PSEUDOMONAS INFECTION
  7. ANTIFUNGAL [Concomitant]
     Indication: ASPERGILLOSIS
  8. ANTIFUNGAL [Concomitant]
     Indication: PSEUDOMONAS INFECTION

REACTIONS (3)
  - ASPERGILLOSIS [None]
  - CALCIPHYLAXIS [None]
  - PSEUDOMONAS INFECTION [None]
